FAERS Safety Report 5679897-3 (Version None)
Quarter: 2008Q1

REPORT INFORMATION
  Report Type: 
  Country: None (occurrence: None)
  Receive Date: 20080324
  Receipt Date: 20080317
  Transmission Date: 20080703
  Serious: Yes (Hospitalization)
  Sender: FDA-Public Use
  Company Number: 008-C5013-08030938

PATIENT
  Age: 73 Year
  Sex: Male

DRUGS (2)
  1. CC-5013 (LENALIDOMIDE) (CAPSULES) [Suspect]
     Indication: MULTIPLE MYELOMA
     Dosage: 25 MG, 1 IN 1 D, ORAL
     Route: 048
     Dates: start: 20071019, end: 20080314
  2. DEXAMETHASONE TAB [Suspect]
     Indication: MULTIPLE MYELOMA
     Dosage: 40 MG
     Dates: start: 20071019, end: 20080314

REACTIONS (6)
  - CYST [None]
  - HAEMOGLOBIN DECREASED [None]
  - HYDROCELE [None]
  - NEUTROPHIL PERCENTAGE INCREASED [None]
  - ORCHITIS [None]
  - PLATELET COUNT DECREASED [None]
